FAERS Safety Report 9275916 (Version 1)
Quarter: 2012Q4

REPORT INFORMATION
  Report Type: Spontaneous
  Country: JP (occurrence: None)
  Receive Date: 20121109
  Receipt Date: 20121109
  Transmission Date: 20130627
  Serious: Yes (Life-Threatening)
  Sender: FDA-Public Use
  Company Number: 2012S1000437

PATIENT
  Age: 77 Year
  Sex: Male
  Weight: 63 kg

DRUGS (10)
  1. CUBICIN (DAPTOMYCIN) [Suspect]
     Indication: STAPHYLOCOCCAL INFECTION
     Route: 042
     Dates: start: 20120508, end: 20120510
  2. CEFTRIAXONE SODIUM [Suspect]
     Indication: PYREXIA
     Route: 042
     Dates: start: 20120506, end: 20120509
  3. VANCOMYCIN [Concomitant]
  4. ARICEPT [Concomitant]
  5. RISPERDAL [Concomitant]
  6. HARNAL [Concomitant]
  7. PANTETHINE [Concomitant]
  8. MAGNESIUM OXIDE [Concomitant]
  9. VALSARTAN [Concomitant]
  10. PERINDOPRIL ERBUMINE [Concomitant]

REACTIONS (3)
  - Thrombocytopenia [None]
  - Procedural haemorrhage [None]
  - Petechiae [None]
